FAERS Safety Report 16031494 (Version 1)
Quarter: 2019Q1

REPORT INFORMATION
  Report Type: Spontaneous
  Country: US (occurrence: US)
  Receive Date: 20190304
  Receipt Date: 20190304
  Transmission Date: 20190418
  Serious: No
  Sender: FDA-Public Use
  Company Number: US-PFIZER INC-2019084835

PATIENT
  Age: 55 Year
  Sex: Male
  Weight: 86.64 kg

DRUGS (1)
  1. LYRICA [Suspect]
     Active Substance: PREGABALIN
     Indication: NEUROPATHY PERIPHERAL
     Dosage: 450 MG, 2X/DAY (150MG THREE CAPSULES)
     Route: 048
     Dates: start: 2018

REACTIONS (3)
  - Drug effect incomplete [Unknown]
  - Insomnia [Unknown]
  - Body height decreased [Unknown]
